FAERS Safety Report 4977125-5 (Version None)
Quarter: 2006Q2

REPORT INFORMATION
  Report Type: 
  Country: None (occurrence: None)
  Receive Date: 20060419
  Receipt Date: 20060411
  Transmission Date: 20061013
  Serious: Yes (Hospitalization, Other)
  Sender: FDA-Public Use
  Company Number: US-ABBOTT-06P-163-0330760-00

PATIENT
  Sex: Male
  Weight: 74.91 kg

DRUGS (1)
  1. TRICOR [Suspect]
     Indication: BLOOD CHOLESTEROL INCREASED
     Route: 048
     Dates: start: 20051101, end: 20060306

REACTIONS (10)
  - ANOREXIA [None]
  - ASTHENIA [None]
  - EAR PAIN [None]
  - HEADACHE [None]
  - LUNG INFILTRATION [None]
  - NIGHT SWEATS [None]
  - OEDEMA PERIPHERAL [None]
  - PAIN IN EXTREMITY [None]
  - RASH [None]
  - RED BLOOD CELL SEDIMENTATION RATE INCREASED [None]
